FAERS Safety Report 4717350-1 (Version None)
Quarter: 2005Q3

REPORT INFORMATION
  Report Type: 
  Country: None (occurrence: None)
  Receive Date: 20050712
  Receipt Date: 20050421
  Transmission Date: 20060218
  Serious: Yes (Hospitalization)
  Sender: FDA-Public Use
  Company Number: PHEH2005US04651

PATIENT
  Age: 66 Year
  Sex: Female
  Weight: 166 kg

DRUGS (9)
  1. GLEEVEC [Suspect]
     Dosage: 400 MG, QD, ORAL
     Route: 048
  2. ACCUPRIL [Suspect]
     Indication: HYPERTENSION
     Dosage: 40 MG, ORAL
     Route: 048
  3. GLUCOVANCE [Concomitant]
  4. LIPITOR /UNK/ (ATORVASTATIN) [Concomitant]
  5. CLONIDINE [Concomitant]
  6. HYDROCHLOROTHIAZIDE [Concomitant]
  7. PEPCID AC [Concomitant]
  8. IRON (IRON) [Concomitant]
  9. GERITOL /USA/ (FERRIC AMMONIUM CITRATE, METHIONINE, VITAMIN B NOS) [Concomitant]

REACTIONS (6)
  - ANGIONEUROTIC OEDEMA [None]
  - DIARRHOEA [None]
  - DYSPHAGIA [None]
  - NAUSEA [None]
  - SWOLLEN TONGUE [None]
  - VOMITING [None]
